FAERS Safety Report 12609392 (Version 2)
Quarter: 2016Q4

REPORT INFORMATION
  Report Type: Report from Study
  Country: US (occurrence: US)
  Receive Date: 20160801
  Receipt Date: 20161018
  Transmission Date: 20170207
  Serious: No
  Sender: FDA-Public Use
  Company Number: PHEH2016US018554

PATIENT
  Sex: Female

DRUGS (1)
  1. ENTRESTO [Suspect]
     Active Substance: SACUBITRIL\VALSARTAN
     Indication: CARDIAC FAILURE
     Dosage: 50 MG (ONCE A DAY IN EVENING), QD
     Route: 065

REACTIONS (3)
  - Inappropriate schedule of drug administration [Unknown]
  - Chest discomfort [Unknown]
  - Chest pain [Unknown]
